FAERS Safety Report 7471391-2 (Version None)
Quarter: 2011Q2

REPORT INFORMATION
  Report Type: 
  Country: None (occurrence: None)
  Receive Date: 20110510
  Receipt Date: 20110506
  Transmission Date: 20111010
  Serious: Yes (Hospitalization)
  Sender: FDA-Public Use
  Company Number: CN-BAYER-201035457GPV

PATIENT
  Age: 80 Year
  Sex: Female

DRUGS (4)
  1. PIOGLITAZONE [Concomitant]
     Dosage: 15 MG (DAILY DOSE), QD, ORAL
     Route: 048
  2. ACARBOSE [Concomitant]
     Route: 048
     Dates: end: 20100503
  3. GLUCOBAY [Suspect]
     Indication: DIABETES MELLITUS
     Dosage: 150 MG (DAILY DOSE), TID, ORAL
     Route: 048
     Dates: start: 20100504, end: 20100510
  4. NOVOLIN R [Concomitant]
     Route: 058

REACTIONS (1)
  - BLOOD GLUCOSE INCREASED [None]
